FAERS Safety Report 4785494-4 (Version None)
Quarter: 2005Q3

REPORT INFORMATION
  Report Type: 
  Country: None (occurrence: None)
  Receive Date: 20050929
  Receipt Date: 20050919
  Transmission Date: 20060218
  Serious: Yes (Other)
  Sender: FDA-Public Use
  Company Number: 2005-07-0203

PATIENT
  Age: 57 Year
  Sex: Female
  Weight: 77.1115 kg

DRUGS (9)
  1. CLARINEX [Suspect]
     Indication: URTICARIA
     Dosage: 1 T QD PRN, ORAL
     Route: 048
  2. GABAPENTIN [Suspect]
     Indication: CONVULSION
     Dosage: 5G QD
     Dates: start: 20050101
  3. TOPAMAX [Suspect]
     Indication: CONVULSION
     Dosage: 100MG BID
     Dates: start: 20050701
  4. ZONEGRAN [Suspect]
     Indication: CONVULSION
     Dosage: 25MG BID
     Dates: start: 20040701, end: 20050801
  5. PERIACTIN [Suspect]
     Indication: URTICARIA
     Dosage: 5MG BID, ORAL
     Route: 048
     Dates: start: 20050701
  6. BACLOFEN [Concomitant]
  7. CENTRUM [Concomitant]
  8. CALCIUM GLUCONATE [Concomitant]
  9. GINKGO BILOBA TABLETS [Concomitant]

REACTIONS (2)
  - CONDITION AGGRAVATED [None]
  - CONVULSION [None]
